FAERS Safety Report 20815630 (Version 1)
Quarter: 2022Q2

REPORT INFORMATION
  Report Type: Spontaneous
  Country: FR (occurrence: FR)
  Receive Date: 20220511
  Receipt Date: 20220511
  Transmission Date: 20220721
  Serious: Yes (Hospitalization, Other)
  Sender: FDA-Public Use
  Company Number: None

PATIENT
  Age: 78 Year
  Weight: 60 kg

DRUGS (5)
  1. ELIQUIS [Suspect]
     Active Substance: APIXABAN
     Indication: Atrial fibrillation
     Dosage: 5 MG 2 FOIS PAR JOUR
     Route: 048
     Dates: start: 202201, end: 20220309
  2. ORAMORPH SR SUSTAINED RELEASE [Suspect]
     Active Substance: MORPHINE SULFATE
     Indication: Pain
     Dosage: 5 GOUTTES MATIN MIDI ET SOIR
     Route: 048
     Dates: end: 20220315
  3. SKENAN [Suspect]
     Active Substance: MORPHINE SULFATE
     Indication: Pain
     Dosage: 2 CP / J
     Route: 048
     Dates: start: 20220311, end: 20220315
  4. IRBESARTAN [Suspect]
     Active Substance: IRBESARTAN
     Indication: Hypertension
     Dosage: AU LONG COURS
     Route: 048
     Dates: end: 20220315
  5. FUROSEMIDE [Suspect]
     Active Substance: FUROSEMIDE
     Indication: Peripheral arterial occlusive disease
     Dosage: 40 MG 2 FOIS PAR JOUR
     Route: 048
     Dates: start: 20220311, end: 20220314

REACTIONS (3)
  - Acute kidney injury [Recovered/Resolved]
  - Toxicity to various agents [Recovered/Resolved]
  - Gastrointestinal haemorrhage [Unknown]

NARRATIVE: CASE EVENT DATE: 20220201
